FAERS Safety Report 8486032-5 (Version None)
Quarter: 2012Q3

REPORT INFORMATION
  Report Type: 
  Country: None (occurrence: None)
  Receive Date: 20120703
  Receipt Date: 20120628
  Transmission Date: 20120928
  Serious: No
  Sender: FDA-Public Use
  Company Number: US-PFIZER INC-2012156241

PATIENT
  Age: 69 Year
  Sex: Female
  Weight: 68 kg

DRUGS (2)
  1. NEURONTIN [Suspect]
     Indication: BACK INJURY
     Dosage: 2300 MG IN A DAY
  2. NEURONTIN [Suspect]
     Indication: MUSCLE SPASMS

REACTIONS (2)
  - HEAD TITUBATION [None]
  - ABNORMAL DREAMS [None]
